FAERS Safety Report 10262060 (Version 1)
Quarter: 2014Q2

REPORT INFORMATION
  Report Type: Spontaneous
  Country: US (occurrence: US)
  Receive Date: 20140626
  Receipt Date: 20140626
  Transmission Date: 20141212
  Serious: No
  Sender: FDA-Public Use
  Company Number: US-TEVA-490202USA

PATIENT
  Age: 38 Year
  Sex: Male
  Weight: 104.42 kg

DRUGS (3)
  1. NUVIGIL [Suspect]
     Indication: HYPERSOMNIA
     Route: 048
     Dates: start: 2012
  2. TEMAZEPAM [Concomitant]
     Indication: SLEEP DISORDER
  3. SYNTHROID [Concomitant]
     Indication: HYPOTHYROIDISM

REACTIONS (1)
  - Drug screen positive [Unknown]
